FAERS Safety Report 13101341 (Version 1)
Quarter: 2017Q1

REPORT INFORMATION
  Report Type: Spontaneous
  Country: GB (occurrence: GB)
  Receive Date: 20170110
  Receipt Date: 20170110
  Transmission Date: 20170428
  Serious: Yes (Death)
  Sender: FDA-Public Use
  Company Number: GB-TEVA-727580ACC

PATIENT
  Age: 36 Year
  Sex: Male

DRUGS (4)
  1. ALCOHOL. [Suspect]
     Active Substance: ALCOHOL
     Dates: end: 20110319
  2. DIAZEPAM. [Suspect]
     Active Substance: DIAZEPAM
     Dates: end: 20110319
  3. ZAPONEX [Suspect]
     Active Substance: CLOZAPINE
     Route: 048
     Dates: start: 20081124, end: 20110319
  4. AMISULPRIDE [Suspect]
     Active Substance: AMISULPRIDE
     Dates: end: 20110319

REACTIONS (5)
  - Toxicity to various agents [Fatal]
  - Neutrophil count increased [Not Recovered/Not Resolved]
  - Lung disorder [Fatal]
  - Alcohol poisoning [Fatal]
  - White blood cell count increased [Not Recovered/Not Resolved]

NARRATIVE: CASE EVENT DATE: 20110303
